FAERS Safety Report 18131705 (Version 1)
Quarter: 2020Q3

REPORT INFORMATION
  Report Type: Spontaneous
  Country: US (occurrence: US)
  Receive Date: 20200810
  Receipt Date: 20200810
  Transmission Date: 20201103
  Serious: Yes (Other)
  Sender: FDA-Public Use
  Company Number: US-ANIPHARMA-2020-US-015032

PATIENT
  Age: 61 Year
  Sex: Female

DRUGS (6)
  1. FENTANYL. [Concomitant]
     Active Substance: FENTANYL
     Dosage: 20 TO 75 MICROGRAMS/KILOGRAM/HOUR
     Route: 042
  2. DOBUTAMINE [Suspect]
     Active Substance: DOBUTAMINE HYDROCHLORIDE
     Indication: CARDIAC OUTPUT DECREASED
     Dosage: 6 MICROGRAMS/KILOGRAM/MINUTE
     Route: 042
  3. EPINEPHRINE. [Suspect]
     Active Substance: EPINEPHRINE
     Indication: CARDIAC OUTPUT DECREASED
     Dosage: 0.05 MICROGRAMS/KILOGRAM/MINUTE
     Route: 042
  4. MILRINONE [Concomitant]
     Active Substance: MILRINONE
     Dosage: 0.4 MICROGRAMS/KILOGRAM/MINUTE
     Route: 042
  5. TERBUTALINE SULFATE TABLETS USP (NON?SPECIFIC) [Suspect]
     Active Substance: TERBUTALINE SULFATE
     Indication: CARDIAC OUTPUT DECREASED
     Dosage: 5 MG EVERY 8 HOURS
     Route: 048
  6. PROPOFOL. [Concomitant]
     Active Substance: PROPOFOL
     Dosage: 20 TO 50 MICROGRAMS/KILOGRAM/MINUTE

REACTIONS (1)
  - Serotonin syndrome [Unknown]
